FAERS Safety Report 9665544 (Version 1)
Quarter: 2013Q4

REPORT INFORMATION
  Report Type: Spontaneous
  Country: US (occurrence: US)
  Receive Date: 20131104
  Receipt Date: 20131104
  Transmission Date: 20140711
  Serious: No
  Sender: FDA-Public Use
  Company Number: US-PFIZER INC-2013310630

PATIENT
  Age: 88 Year
  Sex: Male

DRUGS (5)
  1. CALAN SR [Suspect]
     Indication: HYPERTENSION
     Dosage: 240 MG, 1X/DAY
     Dates: end: 2013
  2. CALAN SR [Suspect]
     Dosage: 240MG IN MORNING AND 120MG IN EVENING
     Dates: start: 2013
  3. VITAMIN D [Concomitant]
     Dosage: UNK, 1X/DAY
  4. IRON [Concomitant]
     Dosage: UNK, 2X/WEEK
  5. BABY ASPIRIN [Concomitant]
     Dosage: UNK

REACTIONS (3)
  - Blood cholesterol increased [Unknown]
  - Drug dose omission [Unknown]
  - Drug ineffective [Unknown]
